FAERS Safety Report 10449329 (Version 1)
Quarter: 2014Q3

REPORT INFORMATION
  Report Type: Spontaneous
  Country: US (occurrence: None)
  Receive Date: 20140911
  Receipt Date: 20140911
  Transmission Date: 20150326
  Serious: Yes (Hospitalization, Other)
  Sender: FDA-Public Use
  Company Number: None

PATIENT
  Age: 33 Year
  Sex: Female
  Weight: 113 kg

DRUGS (1)
  1. VANCOMYCIN [Suspect]
     Active Substance: VANCOMYCIN
     Indication: VULVAL ABSCESS
     Route: 042
     Dates: start: 20140322, end: 20140322

REACTIONS (5)
  - Dialysis [None]
  - Renal tubular necrosis [None]
  - Eosinophils urine present [None]
  - Enterococcus test positive [None]
  - Blood creatine increased [None]

NARRATIVE: CASE EVENT DATE: 20140323
